FAERS Safety Report 9977541 (Version 1)
Quarter: 2014Q1

REPORT INFORMATION
  Report Type: Report from Study
  Country: US (occurrence: US)
  Receive Date: 20140306
  Receipt Date: 20140306
  Transmission Date: 20141002
  Serious: No
  Sender: FDA-Public Use
  Company Number: US-ABBVIE-13P-163-1162824-00

PATIENT
  Age: 31 Year
  Sex: Male

DRUGS (4)
  1. HUMIRA [Suspect]
     Indication: PSORIASIS
     Dates: start: 20130621
  2. CLOBETASOL [Concomitant]
     Indication: PSORIASIS
     Dosage: MONDAY - FRIDAY
     Route: 061
  3. DOVONEX [Concomitant]
     Indication: PSORIASIS
     Dosage: SATURDAY AND SUNDAY
  4. ELIDEL [Concomitant]
     Indication: SKIN ATROPHY

REACTIONS (5)
  - Injection site irritation [Recovered/Resolved]
  - Injection site erythema [Recovered/Resolved]
  - Injection site swelling [Recovered/Resolved]
  - Urticaria [Recovered/Resolved]
  - Local swelling [Recovered/Resolved]
